FAERS Safety Report 11117459 (Version 1)
Quarter: 2015Q2

REPORT INFORMATION
  Report Type: Spontaneous
  Country: US (occurrence: US)
  Receive Date: 20150516
  Receipt Date: 20150516
  Transmission Date: 20150821
  Serious: Yes (Hospitalization)
  Sender: FDA-Public Use
  Company Number: US-B.I. PHARMACEUTICALS,INC./RIDGEFIELD-2015-BI-25361BP

PATIENT
  Sex: Male
  Weight: 76 kg

DRUGS (15)
  1. VITAMIN B12 [Concomitant]
     Active Substance: CYANOCOBALAMIN
     Indication: SUPPLEMENTATION THERAPY
     Dosage: 1000 MCG
     Route: 048
  2. BABY ASPIRIN [Concomitant]
     Active Substance: ASPIRIN
     Indication: ROUTINE HEALTH MAINTENANCE
     Dosage: 81 MG
     Route: 048
     Dates: start: 2013
  3. LOVASTATIN. [Concomitant]
     Active Substance: LOVASTATIN
     Indication: BLOOD CHOLESTEROL INCREASED
     Dosage: 20 MG
     Route: 042
     Dates: start: 2003
  4. TAMSULOSIN [Concomitant]
     Active Substance: TAMSULOSIN
     Indication: PROSTATOMEGALY
     Dosage: 0.4 MG
     Route: 048
     Dates: start: 2014
  5. MILK THISTLE [Concomitant]
     Active Substance: MILK THISTLE
     Indication: SUPPLEMENTATION THERAPY
     Dosage: 350 MG
     Route: 048
  6. LISINOPRIL. [Concomitant]
     Active Substance: LISINOPRIL
     Indication: ROUTINE HEALTH MAINTENANCE
     Dosage: 20 MG
     Route: 048
     Dates: start: 2003
  7. OMEPRAZOLE. [Concomitant]
     Active Substance: OMEPRAZOLE
     Indication: HYPERCHLORHYDRIA
     Dosage: 40 MG
     Route: 048
     Dates: start: 201503
  8. PRADAXA [Suspect]
     Active Substance: DABIGATRAN ETEXILATE MESYLATE
     Indication: BRAIN NEOPLASM
     Dosage: 300 MG
     Route: 048
     Dates: start: 2013
  9. PROBIOTICS [Concomitant]
     Active Substance: PROBIOTICS NOS
     Indication: ROUTINE HEALTH MAINTENANCE
     Dosage: FORMULATION: CAPLET
     Route: 048
  10. GINKGO BILOBA [Concomitant]
     Active Substance: GINKGO
     Indication: ROUTINE HEALTH MAINTENANCE
     Dosage: FORMULATION: CAPLET
     Route: 048
  11. POTASSIUM [Concomitant]
     Active Substance: POTASSIUM
     Indication: ELECTROLYTE SUBSTITUTION THERAPY
     Dosage: 10 MG
     Route: 048
     Dates: start: 2013
  12. VITAMIN D3 [Concomitant]
     Active Substance: CHOLECALCIFEROL
     Indication: SUPPLEMENTATION THERAPY
     Dosage: 1000 U
     Route: 048
  13. MULTIVITAMIN [Concomitant]
     Active Substance: VITAMINS
     Indication: PRODUCT USED FOR UNKNOWN INDICATION
     Dosage: FORMULATION: CAPLET
     Route: 048
  14. LASIX [Concomitant]
     Active Substance: FUROSEMIDE
     Indication: FLUID RETENTION
     Dosage: 20 MG
     Route: 048
     Dates: start: 2013
  15. OMEGA3 [Concomitant]
     Indication: SUPPLEMENTATION THERAPY
     Dosage: FORMULATION: CAPLET
     Route: 048

REACTIONS (4)
  - Hip arthroplasty [Recovered/Resolved]
  - Cardiac failure congestive [Recovered/Resolved]
  - Hip arthroplasty [Recovered/Resolved]
  - Off label use [Unknown]

NARRATIVE: CASE EVENT DATE: 2013
